FAERS Safety Report 15986211 (Version 1)
Quarter: 2019Q1

REPORT INFORMATION
  Report Type: Spontaneous
  Country: CN (occurrence: CN)
  Receive Date: 20190220
  Receipt Date: 20190220
  Transmission Date: 20190418
  Serious: Yes (Other)
  Sender: FDA-Public Use
  Company Number: PHHY2019CN037298

PATIENT
  Age: 42 Year
  Sex: Female

DRUGS (1)
  1. TRILEPTAL [Suspect]
     Active Substance: OXCARBAZEPINE
     Indication: PETIT MAL EPILEPSY
     Dosage: 150 MG, UNK
     Route: 065

REACTIONS (3)
  - Petit mal epilepsy [Unknown]
  - Product use in unapproved indication [Unknown]
  - Disease recurrence [Unknown]
